FAERS Safety Report 4743681-5 (Version None)
Quarter: 2005Q3

REPORT INFORMATION
  Report Type: 
  Country: None (occurrence: None)
  Receive Date: 20050812
  Receipt Date: 20050803
  Transmission Date: 20060218
  Serious: Yes (Hospitalization)
  Sender: FDA-Public Use
  Company Number: FR-SANOFI-SYNTHELABO-A02200502100

PATIENT
  Age: 77 Year
  Sex: Male

DRUGS (2)
  1. PLAVIX [Suspect]
     Indication: CORONARY ARTERY SURGERY
     Route: 048
     Dates: start: 20050616
  2. PREVISCAN [Interacting]
     Indication: CORONARY ARTERY SURGERY
     Route: 048
     Dates: start: 20050618, end: 20050714

REACTIONS (3)
  - DRUG INTERACTION [None]
  - HAEMATURIA [None]
  - PROTHROMBIN TIME RATIO DECREASED [None]
